FAERS Safety Report 25102748 (Version 2)
Quarter: 2025Q1

REPORT INFORMATION
  Report Type: Spontaneous
  Country: AU (occurrence: AU)
  Receive Date: 20250321
  Receipt Date: 20250327
  Transmission Date: 20250409
  Serious: Yes (Hospitalization, Other)
  Sender: Kenvue
  Company Number: None

PATIENT

DRUGS (3)
  1. ACETAMINOPHEN [Suspect]
     Active Substance: ACETAMINOPHEN
     Indication: Product used for unknown indication
     Route: 065
  2. ARIPIPRAZOLE [Suspect]
     Active Substance: ARIPIPRAZOLE
     Indication: Product used for unknown indication
     Route: 065
     Dates: start: 2018
  3. DIAZEPAM [Suspect]
     Active Substance: DIAZEPAM
     Indication: Product used for unknown indication
     Route: 065

REACTIONS (23)
  - Hallucination, tactile [Unknown]
  - Hallucination, visual [Unknown]
  - Hallucination, auditory [Unknown]
  - Suicidal ideation [Unknown]
  - Homicidal ideation [Unknown]
  - Self-injurious ideation [Unknown]
  - Hospitalisation [Unknown]
  - Paranoia [Unknown]
  - Scrotal injury [Unknown]
  - Alcohol abuse [Unknown]
  - Aggression [Unknown]
  - Psychotic disorder [Unknown]
  - Hypersomnia [Unknown]
  - Depression [Unknown]
  - Loss of personal independence in daily activities [Unknown]
  - Persecutory delusion [Unknown]
  - Hypotension [Unknown]
  - Blood prolactin increased [Unknown]
  - Dizziness [Unknown]
  - Fear [Unknown]
  - Overdose [Unknown]
  - Treatment noncompliance [Unknown]
  - Drug ineffective [Unknown]

NARRATIVE: CASE EVENT DATE: 20190101
